FAERS Safety Report 6075526-8 (Version None)
Quarter: 2009Q1

REPORT INFORMATION
  Report Type: 
  Country: None (occurrence: None)
  Receive Date: 20090210
  Receipt Date: 20090210
  Transmission Date: 20090719
  Serious: Yes (Other)
  Sender: FDA-Public Use
  Company Number: None

PATIENT
  Age: 66 Year
  Sex: Male
  Weight: 79.3795 kg

DRUGS (1)
  1. LEVAQUIN [Suspect]
     Indication: PROSTATITIS
     Dosage: 1 PILL DAILY PO
     Route: 048
     Dates: start: 20090129, end: 20090204

REACTIONS (3)
  - ARTHRALGIA [None]
  - JOINT CREPITATION [None]
  - PROCEDURAL PAIN [None]
